FAERS Safety Report 11655134 (Version 2)
Quarter: 2015Q4

REPORT INFORMATION
  Report Type: Spontaneous
  Country: US (occurrence: US)
  Receive Date: 20151023
  Receipt Date: 20151103
  Transmission Date: 20160304
  Serious: Yes (Other)
  Sender: FDA-Public Use
  Company Number: US-SMITH AND NEPHEW, INC-2015SMT00403

PATIENT
  Age: 79 Year
  Sex: Female
  Weight: 90.7 kg

DRUGS (4)
  1. ^OTHER MEDICATIONS RELATED TO HIGH BLOOD PRESSURE AND DIABETES^ [Concomitant]
  2. METFORMIN [Concomitant]
     Active Substance: METFORMIN HYDROCHLORIDE
  3. REGRANEX [Suspect]
     Active Substance: BECAPLERMIN
     Indication: WOUND
     Dosage: UNK
     Route: 061
     Dates: end: 20151001
  4. UNSPECIFIED INSULIN [Concomitant]
     Active Substance: INSULIN NOS

REACTIONS (4)
  - Feeling abnormal [Unknown]
  - Toe amputation [Recovered/Resolved with Sequelae]
  - Drug ineffective [Unknown]
  - Wound complication [Unknown]

NARRATIVE: CASE EVENT DATE: 201510
